FAERS Safety Report 6712863-5 (Version None)
Quarter: 2010Q2

REPORT INFORMATION
  Report Type: 
  Country: None (occurrence: None)
  Receive Date: 20100505
  Receipt Date: 20100505
  Transmission Date: 20101027
  Serious: Yes (Hospitalization)
  Sender: FDA-Public Use
  Company Number: None

PATIENT
  Age: 78 Year
  Sex: Male
  Weight: 65.8 kg

DRUGS (3)
  1. WARFARIN [Suspect]
     Indication: ATRIAL FIBRILLATION
     Dates: start: 20090904
  2. ASPIRIN [Suspect]
     Indication: CARDIOVASCULAR DISORDER
  3. ASPIRIN [Suspect]
     Indication: SURGERY

REACTIONS (5)
  - ANAEMIA [None]
  - DIVERTICULITIS INTESTINAL HAEMORRHAGIC [None]
  - EPISTAXIS [None]
  - HAEMATOCHEZIA [None]
  - HAEMORRHAGE [None]
